FAERS Safety Report 13586209 (Version 2)
Quarter: 2017Q2

REPORT INFORMATION
  Report Type: Spontaneous
  Country: US (occurrence: US)
  Receive Date: 20170526
  Receipt Date: 20170529
  Transmission Date: 20170830
  Serious: No
  Sender: FDA-Public Use
  Company Number: US-ASTRAZENECA-2017SE55242

PATIENT
  Age: 265 Month
  Sex: Female
  Weight: 116.1 kg

DRUGS (9)
  1. OMEPRAZOLE. [Suspect]
     Active Substance: OMEPRAZOLE
     Indication: GASTROOESOPHAGEAL REFLUX DISEASE
     Route: 048
  2. SINGULAIR GENERIC [Concomitant]
     Active Substance: MONTELUKAST SODIUM
     Route: 048
  3. PROBIOTIC MULTIVITAMIN [Concomitant]
     Route: 048
  4. CLONIDINE. [Concomitant]
     Active Substance: CLONIDINE
     Route: 048
  5. TRESIBA INSULIN [Concomitant]
     Dosage: 50 UNITS DAILY
  6. METFORMIN [Concomitant]
     Active Substance: METFORMIN HYDROCHLORIDE
     Route: 048
  7. BYDUREON [Suspect]
     Active Substance: EXENATIDE
     Indication: TYPE 2 DIABETES MELLITUS
     Route: 058
     Dates: start: 201704
  8. LOSARTAN. [Concomitant]
     Active Substance: LOSARTAN
     Route: 048
  9. CALCIUM [Concomitant]
     Active Substance: CALCIUM
     Route: 048

REACTIONS (8)
  - Injection site warmth [Unknown]
  - Autism spectrum disorder [Unknown]
  - Injection site nodule [Recovering/Resolving]
  - Appetite disorder [Unknown]
  - Injection site bruising [Unknown]
  - Early satiety [Unknown]
  - Injection site pain [Unknown]
  - Sensory disturbance [Unknown]

NARRATIVE: CASE EVENT DATE: 201704
